FAERS Safety Report 5174002-4 (Version None)
Quarter: 2006Q4

REPORT INFORMATION
  Report Type: 
  Country: None (occurrence: None)
  Receive Date: 20061214
  Receipt Date: 20061107
  Transmission Date: 20070319
  Serious: Yes (Hospitalization)
  Sender: FDA-Public Use
  Company Number: ES-MERCK-0611ESP00007

PATIENT
  Age: 55 Year
  Sex: Male

DRUGS (3)
  1. SINGULAIR [Suspect]
     Indication: SINUSITIS
     Route: 048
     Dates: start: 20040101, end: 20061001
  2. SINGULAIR [Suspect]
     Indication: ASTHMA
     Route: 048
     Dates: start: 20040101, end: 20061001
  3. FLUTICASONE PROPIONATE AND SALMETEROL XINAFOATE [Concomitant]
     Indication: ASTHMA
     Dates: start: 20060301

REACTIONS (1)
  - ALLERGIC GRANULOMATOUS ANGIITIS [None]
